FAERS Safety Report 18521945 (Version 4)
Quarter: 2021Q1

REPORT INFORMATION
  Report Type: Spontaneous
  Country: US (occurrence: US)
  Receive Date: 20201119
  Receipt Date: 20210323
  Transmission Date: 20210419
  Serious: Yes (Death, Other)
  Sender: FDA-Public Use
  Company Number: US-TEVA-2020-US-1850336

PATIENT
  Sex: Female

DRUGS (35)
  1. VALSARTAN/HYDROCHLOROTHIAZIDE TEVA [Suspect]
     Active Substance: HYDROCHLOROTHIAZIDE\VALSARTAN
     Indication: HYPERTENSION
     Dosage: DOSAGE: 160 MG
     Route: 065
     Dates: start: 20121022, end: 20121121
  2. VALSARTAN/HYDROCHLOROTHIAZIDE TEVA [Suspect]
     Active Substance: HYDROCHLOROTHIAZIDE\VALSARTAN
     Dosage: DOSAGE: 160 MG
     Route: 065
     Dates: start: 20140929, end: 20150316
  3. VALSARTAN/HYDROCHLOROTHIAZIDE AUROBINDO [Suspect]
     Active Substance: HYDROCHLOROTHIAZIDE\VALSARTAN
     Dosage: DOSAGE: 160 MG
     Route: 065
     Dates: start: 20161215, end: 20171207
  4. LIPITOR [Concomitant]
     Active Substance: ATORVASTATIN CALCIUM
     Dosage: 20MG AT BEDTIME
     Route: 048
     Dates: start: 20170424, end: 20180424
  5. LIDOCAINE/PRILOCAINE [Concomitant]
     Active Substance: LIDOCAINE\PRILOCAINE
     Dates: start: 20171110
  6. THERAGRAN [Concomitant]
     Active Substance: VITAMINS
     Dosage: DAILY 1 TABLET
     Route: 048
  7. ZOFRAN [Concomitant]
     Active Substance: ONDANSETRON HYDROCHLORIDE
     Dosage: DOSAGE: 4MG; EVERY EIGHT HOURS AS NEEDED
     Route: 048
     Dates: start: 20171011
  8. CALCIUM CARBONATE. [Concomitant]
     Active Substance: CALCIUM CARBONATE
     Indication: DYSPEPSIA
     Dosage: CHEW 2 TABLETS 400MG 3 TIMES A DAY AS NEEDED
     Dates: start: 20171110
  9. PRILOSEC [Concomitant]
     Active Substance: OMEPRAZOLE MAGNESIUM
     Dosage: 40 MG; DAILY
     Route: 048
     Dates: start: 20171129
  10. VALSARTAN/HCT LUPIN [Suspect]
     Active Substance: HYDROCHLOROTHIAZIDE\VALSARTAN
     Indication: HYPERTENSION
     Dosage: DOSAGE: 160 MG, VALSARTAN W/HYDROCHLOROTHIAZIDE LUPIN?VALSARTAN/HYDROCHLOROTHIAZIDE LUPIN
     Route: 065
     Dates: start: 20160620, end: 20160720
  11. COMPAZINE [Concomitant]
     Active Substance: PROCHLORPERAZINE MALEATE
     Indication: NAUSEA
     Dosage: 10MG: 1 TABLET EVERY 6 HOURS AS NEEDED
     Route: 048
     Dates: start: 20171025
  12. VALSARTAN/HYDROCHLOROTHIAZIDE TEVA [Suspect]
     Active Substance: HYDROCHLOROTHIAZIDE\VALSARTAN
     Dosage: DOSAGE: 160 MG
     Route: 065
     Dates: start: 20130103, end: 20130306
  13. VALSARTAN/HYDROCHLOROTHIAZIDE TEVA [Suspect]
     Active Substance: HYDROCHLOROTHIAZIDE\VALSARTAN
     Dosage: DOSAGE: 160 MG
     Route: 065
     Dates: start: 20130225, end: 20130825
  14. VALSARTAN/HYDROCHLOROTHIAZIDE AUROBINDO [Suspect]
     Active Substance: HYDROCHLOROTHIAZIDE\VALSARTAN
     Dosage: DOSAGE: 160 MG
     Route: 065
     Dates: start: 20151214, end: 20160312
  15. VALSARTAN/HYDROCHLOROTHIAZIDE AUROBINDO [Suspect]
     Active Substance: HYDROCHLOROTHIAZIDE\VALSARTAN
     Dosage: DOSAGE: 160 MG
     Route: 065
     Dates: start: 20160604, end: 20161209
  16. CALCIUM CARBONATE/VITAMIN D NOS [Concomitant]
     Dosage: 600MG: CALCIUM; 400 UNIT VIT?D3; 1 TABLET
     Route: 048
     Dates: start: 20131010
  17. ZOFRAN [Concomitant]
     Active Substance: ONDANSETRON HYDROCHLORIDE
     Indication: VOMITING
  18. AMBIEN [Concomitant]
     Active Substance: ZOLPIDEM TARTRATE
     Indication: INSOMNIA
     Dosage: 5MG; NIGHTLY AS NEEDED
     Route: 048
     Dates: start: 20171030
  19. VALSARTAN/HYDROCHLOROTHIAZIDE TEVA [Suspect]
     Active Substance: HYDROCHLOROTHIAZIDE\VALSARTAN
     Dosage: DOSAGE: 160 MG
     Route: 065
     Dates: start: 20140401, end: 20140630
  20. VALSARTAN/HYDROCHLOROTHIAZIDE AUROBINDO [Suspect]
     Active Substance: HYDROCHLOROTHIAZIDE\VALSARTAN
     Dosage: DOSAGE: 160 MG
     Route: 065
     Dates: start: 20160310, end: 20160614
  21. VALSARTAN/HYDROCHLOROTHIAZIDE SANDOZ [Suspect]
     Active Substance: HYDROCHLOROTHIAZIDE\VALSARTAN
     Indication: HYPERTENSION
     Dosage: DOSAGE: 160 MG, VALSARTAN W/HYDROCHLOROTHIAZIDE SANDOZ
     Route: 065
     Dates: start: 20140226, end: 20140328
  22. RETIN A 0.1 PERCENT CREAM [Concomitant]
     Dosage: APPLY 1 APPLICATION TOPICALLY TO AFFECTED AREA AT BEDTIME
     Dates: start: 20161207, end: 20171207
  23. VALSARTAN/HYDROCHLOROTHIAZIDE AUROBINDO [Suspect]
     Active Substance: HYDROCHLOROTHIAZIDE\VALSARTAN
     Indication: HYPERTENSION
     Dosage: DOSAGE: 160 MG, VALSARTAN W/HYDROCHLOROTHIAZIDE AUROBINDO
     Route: 065
     Dates: start: 20150330, end: 20151216
  24. ANUSOL?HC [Concomitant]
     Active Substance: HYDROCORTISONE
     Dosage: AS NEEDED
     Dates: start: 20170614
  25. REMERON [Concomitant]
     Active Substance: MIRTAZAPINE
     Indication: PAIN
     Dosage: DISSOLVE 1 TAB (15)MG ON TONGUE AT BEDTIME; EVERY 4 HOURS AS NEEDED
     Route: 048
     Dates: start: 20170103
  26. OCUVITE [Concomitant]
     Active Substance: VITAMINS
     Dosage: TAKE 1 CAPSULE
     Route: 048
  27. DECADRON [Concomitant]
     Active Substance: DEXAMETHASONE
     Dosage: 2MG; TWICE DAILY: 3 DAYS; 2 DAYS AFTER EACH DOSE OF CHEMO
     Route: 048
     Dates: start: 20171129
  28. LACTOBACILLUS CASEI [Concomitant]
     Active Substance: LACTOBACILLUS CASEI
     Dosage: 1 CAPSULE
     Route: 048
     Dates: start: 20170907, end: 20180306
  29. ZOFRAN [Concomitant]
     Active Substance: ONDANSETRON HYDROCHLORIDE
     Indication: NAUSEA
     Dosage: DOSAGE: 8MG; EVERY EIGHT HOURS AS NEEDED
     Route: 048
     Dates: start: 20171025
  30. GLYCOLAX [Concomitant]
     Active Substance: POLYETHYLENE GLYCOL 3350
     Dosage: POUR 17GRMS AND DRINK DAILY
     Dates: start: 20171027
  31. COMPAZINE [Concomitant]
     Active Substance: PROCHLORPERAZINE MALEATE
     Indication: VOMITING
  32. ULTRAM [Concomitant]
     Active Substance: TRAMADOL HYDROCHLORIDE
     Indication: PAIN
     Dosage: 50MG: EVERY 6 HOURS AS NEEDED
     Route: 048
     Dates: start: 20171030
  33. ASPIRIN. [Concomitant]
     Active Substance: ASPIRIN
     Dosage: 81MG
     Route: 048
  34. DECADRON [Concomitant]
     Active Substance: DEXAMETHASONE
     Dosage: 4MG; TWICE DAILY: 3 DAYS; 2 DAYS AFTER EACH DOSE OF CISPLATIN OF EACH CYCLE
     Route: 048
     Dates: start: 20171025, end: 20181129
  35. DIOVAN [Concomitant]
     Active Substance: VALSARTAN
     Dosage: 160MG TABLET; DAILY
     Route: 048
     Dates: start: 20171103

REACTIONS (28)
  - Acute kidney injury [Unknown]
  - Peritoneal disorder [Unknown]
  - Nausea [Unknown]
  - Constipation [Unknown]
  - Abdominal discomfort [Unknown]
  - Adenocarcinoma pancreas [Unknown]
  - Peritonitis [Unknown]
  - Tachycardia [Unknown]
  - Decreased appetite [Unknown]
  - Intestinal perforation [Unknown]
  - Abdominal pain [Unknown]
  - Diarrhoea [Unknown]
  - Pancreatic carcinoma [Fatal]
  - Failure to thrive [Unknown]
  - Vomiting [Unknown]
  - Pneumoperitoneum [Unknown]
  - Insomnia [Unknown]
  - Hypokalaemia [Unknown]
  - Hypoxia [Unknown]
  - Hypotension [Unknown]
  - Palatal disorder [Unknown]
  - Depression [Unknown]
  - Abdominal pain lower [Unknown]
  - Back pain [Unknown]
  - Malignant ascites [Unknown]
  - Pulmonary embolism [Unknown]
  - Anaemia [Unknown]
  - Gastrooesophageal reflux disease [Unknown]
